FAERS Safety Report 14354592 (Version 1)
Quarter: 2018Q1

REPORT INFORMATION
  Report Type: Spontaneous
  Country: US (occurrence: US)
  Receive Date: 20180105
  Receipt Date: 20180105
  Transmission Date: 20180509
  Serious: Yes (Other)
  Sender: FDA-Public Use
  Company Number: US-TESARO INC.-TS51-00021-2018USA

PATIENT

DRUGS (2)
  1. ROLAPITANT HYDROCHLORIDE [Suspect]
     Active Substance: ROLAPITANT
     Indication: NAUSEA
     Route: 042
  2. ROLAPITANT HYDROCHLORIDE [Suspect]
     Active Substance: ROLAPITANT
     Indication: VOMITING

REACTIONS (10)
  - Palmar erythema [Unknown]
  - Gastrointestinal disorder [Unknown]
  - Chest pain [Unknown]
  - Bronchospasm [Unknown]
  - Erythema [Unknown]
  - Flushing [Unknown]
  - Feeling hot [Unknown]
  - Dizziness [Unknown]
  - Abdominal discomfort [Unknown]
  - Throat tightness [Unknown]
